FAERS Safety Report 24315894 (Version 1)
Quarter: 2024Q3

REPORT INFORMATION
  Report Type: Spontaneous
  Country: AU (occurrence: AU)
  Receive Date: 20240913
  Receipt Date: 20240913
  Transmission Date: 20241017
  Serious: Yes (Other)
  Sender: RANBAXY
  Company Number: AU-SUN PHARMACEUTICAL INDUSTRIES LTD-2024R1-467312

PATIENT
  Age: 61 Year
  Sex: Male

DRUGS (25)
  1. LENALIDOMIDE [Suspect]
     Active Substance: LENALIDOMIDE
     Indication: Plasma cell myeloma
     Dosage: 25 MILLIGRAM
     Route: 048
     Dates: start: 20240417, end: 20240429
  2. DARATUMUMAB [Suspect]
     Active Substance: DARATUMUMAB
     Indication: Plasma cell myeloma
     Dosage: 15 MILLILITER
     Route: 058
     Dates: start: 20240318, end: 20240507
  3. TALQUETAMAB [Suspect]
     Active Substance: TALQUETAMAB
     Indication: Plasma cell myeloma
     Dosage: 2.56 MILLILITER
     Route: 058
     Dates: start: 20240402, end: 20240415
  4. TALQUETAMAB [Suspect]
     Active Substance: TALQUETAMAB
     Dosage: 2.56 UNK
     Route: 058
     Dates: start: 20240402, end: 20240415
  5. TALQUETAMAB [Suspect]
     Active Substance: TALQUETAMAB
     Dosage: 2.56 MILLILITER
     Route: 065
     Dates: start: 20240415
  6. EXFORGE HCT [Concomitant]
     Active Substance: AMLODIPINE BESYLATE\HYDROCHLOROTHIAZIDE\VALSARTAN
     Indication: Hypertension
     Dosage: UNK
     Route: 048
     Dates: start: 20240101
  7. PANADOL [Concomitant]
     Active Substance: ACETAMINOPHEN
     Indication: Osteoarthritis
     Dosage: 665 MILLIGRAM
     Route: 048
     Dates: start: 20210101
  8. MOXONIDINE [Concomitant]
     Active Substance: MOXONIDINE
     Indication: Hypertension
     Dosage: 200 MICROGRAM
     Route: 048
     Dates: start: 20140101
  9. ASPIRIN [Concomitant]
     Active Substance: ASPIRIN
     Indication: Prophylaxis
     Dosage: 100 MILLIGRAM
     Route: 048
     Dates: start: 20240415
  10. ALLOPURINOL [Concomitant]
     Active Substance: ALLOPURINOL
     Indication: Prophylaxis
     Dosage: 300 MILLIGRAM
     Route: 048
     Dates: start: 20240318
  11. ALUMINUM HYDROXIDE [Concomitant]
     Active Substance: ALUMINUM HYDROXIDE
     Indication: Prophylaxis
     Dosage: 20 MILLILITER
     Route: 048
     Dates: start: 20240417, end: 20240417
  12. DIAZEPAM [Concomitant]
     Active Substance: DIAZEPAM
     Indication: Claustrophobia
     Dosage: 10 MILLIGRAM
     Route: 048
     Dates: start: 20140101
  13. HYDROCORTISONE [Concomitant]
     Active Substance: HYDROCORTISONE\HYDROCORTISONE ACETATE
     Indication: Injection site reaction
     Dosage: UNK
     Route: 061
     Dates: start: 20240407
  14. LORATADINE [Concomitant]
     Active Substance: LORATADINE
     Indication: Rash erythematous
     Dosage: 10 MILLIGRAM
     Route: 048
     Dates: start: 20240403
  15. LORATADINE [Concomitant]
     Active Substance: LORATADINE
     Indication: Injection site reaction
  16. METOCLOPRAMIDE [Concomitant]
     Active Substance: METOCLOPRAMIDE
     Indication: Prophylaxis
     Dosage: 10 MILLIGRAM
     Route: 048
     Dates: start: 20240318
  17. FILGRASTIM [Concomitant]
     Active Substance: FILGRASTIM
     Indication: Stem cell transplant
     Route: 065
  18. FLUCLOXACILLIN [Concomitant]
     Active Substance: FLUCLOXACILLIN
     Indication: Injection site reaction
     Dosage: UNK
     Route: 042
     Dates: start: 20240512, end: 20240513
  19. FLUCLOXACILLIN [Concomitant]
     Active Substance: FLUCLOXACILLIN
     Dosage: UNK
     Route: 048
  20. FUROSEMIDE [Concomitant]
     Active Substance: FUROSEMIDE
     Indication: Oedema
     Route: 065
  21. SULFAMETHOXAZOLE\TRIMETHOPRIM [Concomitant]
     Active Substance: SULFAMETHOXAZOLE\TRIMETHOPRIM
     Indication: Prophylaxis
     Route: 065
  22. PANTOPRAZOLE [Concomitant]
     Active Substance: PANTOPRAZOLE
     Indication: Prophylaxis
     Route: 065
  23. VALACYCLOVIR HYDROCHLORIDE [Concomitant]
     Active Substance: VALACYCLOVIR HYDROCHLORIDE
     Indication: Prophylaxis
     Route: 065
  24. BETAMETHASONE VALERATE [Concomitant]
     Active Substance: BETAMETHASONE VALERATE
     Indication: Rash
     Route: 065
  25. PROMETHAZINE [Concomitant]
     Active Substance: PROMETHAZINE HYDROCHLORIDE
     Indication: Injection site reaction
     Route: 065

REACTIONS (2)
  - Cytokine release syndrome [Recovered/Resolved]
  - Cellulitis [Recovered/Resolved]

NARRATIVE: CASE EVENT DATE: 20240418
